FAERS Safety Report 6669180-1 (Version None)
Quarter: 2010Q2

REPORT INFORMATION
  Report Type: 
  Country: None (occurrence: None)
  Receive Date: 20100406
  Receipt Date: 20100319
  Transmission Date: 20101027
  Serious: Yes (Death)
  Sender: FDA-Public Use
  Company Number: GB-PFIZER INC-2009310455

PATIENT
  Sex: Female

DRUGS (4)
  1. BLINDED *PLACEBO [Suspect]
     Indication: RHEUMATOID ARTHRITIS
     Dosage: UNK
     Dates: start: 20081203
  2. BLINDED ATORVASTATIN CALCIUM [Suspect]
     Indication: RHEUMATOID ARTHRITIS
     Dosage: UNK
     Dates: start: 20081203
  3. BLINDED *PLACEBO [Suspect]
     Indication: CARDIOVASCULAR EVENT PROPHYLAXIS
  4. BLINDED ATORVASTATIN CALCIUM [Suspect]
     Indication: CARDIOVASCULAR EVENT PROPHYLAXIS

REACTIONS (1)
  - MYOCARDIAL ISCHAEMIA [None]
